FAERS Safety Report 6690882-5 (Version None)
Quarter: 2010Q2

REPORT INFORMATION
  Report Type: 
  Country: None (occurrence: None)
  Receive Date: 20100421
  Receipt Date: 20100411
  Transmission Date: 20101027
  Serious: Yes (Other)
  Sender: FDA-Public Use
  Company Number: CA-PFIZER INC-2010046070

PATIENT
  Age: 81 Year
  Sex: Male
  Weight: 74.9 kg

DRUGS (3)
  1. LIPITOR [Suspect]
     Indication: CORONARY ARTERIAL STENT INSERTION
     Dosage: 80 MG, 1X/DAY
     Route: 048
     Dates: start: 20100301
  2. HYDROCHLOROTHIAZIDE [Concomitant]
     Indication: HYPERTENSION
     Dosage: 25 MG, 1X/DAY
  3. METOPROLOL [Concomitant]
     Indication: HYPERTENSION
     Dosage: UNK
     Dates: start: 20100101

REACTIONS (3)
  - CHEST DISCOMFORT [None]
  - FATIGUE [None]
  - MYALGIA [None]
